FAERS Safety Report 10622223 (Version 1)
Quarter: 2014Q4

REPORT INFORMATION
  Report Type: Spontaneous
  Country: US (occurrence: None)
  Receive Date: 20141202
  Receipt Date: 20141202
  Transmission Date: 20150529
  Serious: Yes (Other)
  Sender: FDA-Public Use
  Company Number: None

PATIENT
  Age: 54 Year
  Sex: Male
  Weight: 77.11 kg

DRUGS (1)
  1. CEFTRIAXONE 26 MG, 5 ML, NS BAG [Suspect]
     Active Substance: CEFTRIAXONE
     Indication: ENDOCARDITIS
     Dosage: IV VIA PICC
     Route: 042
     Dates: start: 20141111, end: 20141129

REACTIONS (3)
  - Urticaria [None]
  - Rash [None]
  - Swelling [None]

NARRATIVE: CASE EVENT DATE: 20141128
